FAERS Safety Report 4966752-7 (Version None)
Quarter: 2006Q1

REPORT INFORMATION
  Report Type: 
  Country: None (occurrence: None)
  Receive Date: 20060201
  Receipt Date: 20051116
  Transmission Date: 20060701
  Serious: No
  Sender: FDA-Public Use
  Company Number: 2005PV005135

PATIENT
  Age: 50 Year
  Sex: Female

DRUGS (11)
  1. BYETTA [Suspect]
     Dosage: 5 MCG;BID;SC
     Route: 058
     Dates: start: 20051113
  2. LANTUS [Concomitant]
  3. HUMALOG [Concomitant]
  4. SYNTHROID [Concomitant]
  5. LASIX [Concomitant]
  6. THYROXOLINE [Concomitant]
  7. SINGULAIR [Concomitant]
  8. LARTADINE [Concomitant]
  9. PROTONIX [Concomitant]
  10. GLUCOPHAGE [Concomitant]
  11. INSULIN [Concomitant]

REACTIONS (1)
  - BLOOD GLUCOSE INCREASED [None]
